FAERS Safety Report 10655651 (Version 3)
Quarter: 2014Q4

REPORT INFORMATION
  Report Type: Spontaneous
  Country: JP (occurrence: JP)
  Receive Date: 20141216
  Receipt Date: 20141226
  Transmission Date: 20150529
  Serious: Yes (Hospitalization, Other)
  Sender: FDA-Public Use
  Company Number: JP-ROCHE-1505028

PATIENT
  Age: 0 Day
  Sex: Female
  Weight: 1.99 kg

DRUGS (2)
  1. ENBREL [Suspect]
     Active Substance: ETANERCEPT
     Indication: PRODUCT USED FOR UNKNOWN INDICATION
     Route: 064
     Dates: start: 20140225, end: 2014
  2. ACTEMRA [Suspect]
     Active Substance: TOCILIZUMAB
     Indication: PRODUCT USED FOR UNKNOWN INDICATION
     Route: 064
     Dates: start: 20080827, end: 20140220

REACTIONS (8)
  - Bradycardia foetal [Recovered/Resolved]
  - Cerebral haemorrhage neonatal [Not Recovered/Not Resolved]
  - Hyperbilirubinaemia neonatal [Recovered/Resolved]
  - Foetal exposure during pregnancy [Unknown]
  - Hypocalcaemia [Unknown]
  - Subarachnoid haemorrhage neonatal [Not Recovered/Not Resolved]
  - Apnoea neonatal [Recovered/Resolved]
  - Premature baby [Unknown]

NARRATIVE: CASE EVENT DATE: 20140831
